FAERS Safety Report 11929956 (Version 1)
Quarter: 2016Q1

REPORT INFORMATION
  Report Type: Spontaneous
  Country: None (occurrence: None)
  Receive Date: 20160119
  Receipt Date: 20160119
  Transmission Date: 20160526
  Serious: No
  Sender: FDA-Public Use
  Company Number: None

PATIENT
  Age: 37 Year
  Sex: Female

DRUGS (2)
  1. EXCEDRIN MIGRAINE [Concomitant]
     Active Substance: ACETAMINOPHEN\ASPIRIN\CAFFEINE
  2. NEXPLANON [Suspect]
     Active Substance: ETONOGESTREL
     Dosage: LEFT ARM INSERT
     Dates: start: 20151027, end: 20160114

REACTIONS (8)
  - Mood swings [None]
  - Paranoia [None]
  - Vaginal infection [None]
  - Depression [None]
  - Anxiety [None]
  - Fungal infection [None]
  - Dizziness [None]
  - Nervousness [None]

NARRATIVE: CASE EVENT DATE: 20151029
